FAERS Safety Report 4308931-8 (Version None)
Quarter: 2004Q1

REPORT INFORMATION
  Report Type: 
  Country: None (occurrence: None)
  Receive Date: 20040227
  Receipt Date: 20040216
  Transmission Date: 20041129
  Serious: Yes (Death)
  Sender: FDA-Public Use
  Company Number: NL-JNJFOC-20040104001

PATIENT
  Age: 54 Year

DRUGS (4)
  1. RISPERIDAL (RISPERIDONE) TABLETS [Suspect]
     Indication: SCHIZOPHRENIA, PARANOID TYPE
     Dosage: 2 MG
     Dates: start: 20000701
  2. FLUVOXAMINE (FLUVOXAMINE) TABLETS [Concomitant]
  3. GLIBENCLAMIDE (GLIBENCLAMIDE) TABLETS [Concomitant]
  4. LISINOPRIL (LISINOPRIL) TABLETS [Concomitant]

REACTIONS (2)
  - CARDIAC FAILURE ACUTE [None]
  - SUDDEN DEATH [None]
